FAERS Safety Report 13278463 (Version 1)
Quarter: 2017Q1

REPORT INFORMATION
  Report Type: Spontaneous
  Country: US (occurrence: US)
  Receive Date: 20170228
  Receipt Date: 20170228
  Transmission Date: 20170428
  Serious: Yes (Other)
  Sender: FDA-Public Use
  Company Number: US-BAYER-2017-037161

PATIENT
  Age: 76 Year
  Sex: Female
  Weight: 107 kg

DRUGS (4)
  1. CORICIDIN HBP NIGHTTIME [Suspect]
     Active Substance: ACETAMINOPHEN\DEXTROMETHORPHAN HYDROBROMIDE\DOXYLAMINE SUCCINATE
     Indication: NASOPHARYNGITIS
  2. ATENOMEL [Concomitant]
     Dosage: UNK
  3. CORICIDIN HBP NIGHTTIME [Suspect]
     Active Substance: ACETAMINOPHEN\DEXTROMETHORPHAN HYDROBROMIDE\DOXYLAMINE SUCCINATE
     Indication: ALLERGIC RESPIRATORY SYMPTOM
     Dosage: 2 DF TEASPOONS, QD
     Route: 048
     Dates: start: 20110225, end: 20170213
  4. NORVASC [Concomitant]
     Active Substance: AMLODIPINE BESYLATE

REACTIONS (7)
  - Blindness unilateral [Recovered/Resolved]
  - Hypoaesthesia [Recovered/Resolved]
  - Malaise [Recovered/Resolved]
  - Transient ischaemic attack [Recovered/Resolved]
  - Hemianaesthesia [Recovered/Resolved]
  - Eye paraesthesia [Recovered/Resolved]
  - Discomfort [Recovered/Resolved]

NARRATIVE: CASE EVENT DATE: 20170211
